APPROVED DRUG PRODUCT: DULOXETINE HYDROCHLORIDE
Active Ingredient: DULOXETINE HYDROCHLORIDE
Strength: EQ 60MG BASE
Dosage Form/Route: CAPSULE, DELAYED REL PELLETS;ORAL
Application: A203197 | Product #003 | TE Code: AB
Applicant: ALKEM LABORATORIES LTD
Approved: Aug 26, 2015 | RLD: No | RS: No | Type: RX